FAERS Safety Report 5276973-4 (Version None)
Quarter: 2007Q1

REPORT INFORMATION
  Report Type: 
  Country: None (occurrence: None)
  Receive Date: 20070327
  Receipt Date: 20070320
  Transmission Date: 20070707
  Serious: Yes (Hospitalization)
  Sender: FDA-Public Use
  Company Number: FRWYE762223FEB07

PATIENT
  Age: 37 Year
  Sex: Female

DRUGS (6)
  1. TYGACIL [Suspect]
     Indication: MYCOBACTERIUM ABSCESSUS INFECTION
     Route: 042
     Dates: start: 20060519, end: 20070108
  2. AMIKLIN [Concomitant]
     Dosage: UNKNOWN
     Dates: start: 20060401, end: 20060101
  3. CEFOXITIN [Concomitant]
     Dosage: UNKNOWN
     Dates: start: 20060509, end: 20060101
  4. CLARITHROMYCIN [Concomitant]
     Dosage: UNKNOWN
     Dates: start: 20060401, end: 20060101
  5. TACROLIMUS [Concomitant]
     Dosage: UNKNOWN
  6. MYCOPHENOLATE MOFETIL [Concomitant]
     Dosage: UNKNOWN

REACTIONS (3)
  - CONDITION AGGRAVATED [None]
  - HYPERCHOLESTEROLAEMIA [None]
  - HYPERTRIGLYCERIDAEMIA [None]
